FAERS Safety Report 6468400-6 (Version None)
Quarter: 2009Q4

REPORT INFORMATION
  Report Type: 
  Country: None (occurrence: None)
  Receive Date: 20091203
  Receipt Date: 20091125
  Transmission Date: 20100525
  Serious: Yes (Hospitalization)
  Sender: FDA-Public Use
  Company Number: US-BIOGENIDEC-2007BI013625

PATIENT
  Age: 45 Year
  Sex: Male

DRUGS (2)
  1. AVONEX [Suspect]
     Indication: MULTIPLE SCLEROSIS
     Route: 030
     Dates: start: 19981123
  2. AVONEX [Suspect]
     Route: 030
     Dates: start: 20030825

REACTIONS (3)
  - GAIT DISTURBANCE [None]
  - INTERVERTEBRAL DISC DISORDER [None]
  - PERONEAL NERVE PALSY [None]
